FAERS Safety Report 7295013-9 (Version None)
Quarter: 2011Q1

REPORT INFORMATION
  Report Type: 
  Country: None (occurrence: None)
  Receive Date: 20110216
  Receipt Date: 20110207
  Transmission Date: 20110831
  Serious: Yes (Hospitalization)
  Sender: FDA-Public Use
  Company Number: US-JNJFOC-20100106474

PATIENT
  Sex: Male
  Weight: 55.79 kg

DRUGS (9)
  1. REMICADE [Suspect]
     Route: 042
  2. REMICADE [Suspect]
     Route: 042
  3. REMICADE [Suspect]
     Indication: CROHN'S DISEASE
     Route: 042
  4. SULFASALAZINE [Concomitant]
  5. REMICADE [Suspect]
     Dosage: 1 INFUSION
     Route: 042
  6. REMICADE [Suspect]
     Route: 042
  7. REMICADE [Suspect]
     Dosage: 8 INFUSIONS
     Route: 042
  8. ANTIBIOTICS [Concomitant]
  9. REMICADE [Suspect]
     Dosage: 34 INFUSIONS
     Route: 042

REACTIONS (7)
  - ABDOMINAL HERNIA [None]
  - OSTEOMYELITIS [None]
  - FISTULA [None]
  - SMALL INTESTINAL OBSTRUCTION [None]
  - ABSCESS [None]
  - ILEUS [None]
  - NEPHROLITHIASIS [None]
